FAERS Safety Report 24040817 (Version 2)
Quarter: 2024Q3

REPORT INFORMATION
  Report Type: Spontaneous
  Country: US (occurrence: US)
  Receive Date: 20240702
  Receipt Date: 20240828
  Transmission Date: 20241017
  Serious: No
  Sender: ROCHE
  Company Number: US-ROCHE-10000014105

PATIENT
  Age: 13 Year
  Sex: Female

DRUGS (1)
  1. XOLAIR [Suspect]
     Active Substance: OMALIZUMAB
     Indication: Asthma
     Dosage: XOLAIR AUTO 300MG/2ML
     Route: 058

REACTIONS (3)
  - Off label use [Unknown]
  - Device difficult to use [Unknown]
  - No adverse event [Unknown]
